FAERS Safety Report 24118909 (Version 1)
Quarter: 2024Q3

REPORT INFORMATION
  Report Type: Other
  Country: FR (occurrence: FR)
  Receive Date: 20240722
  Receipt Date: 20240722
  Transmission Date: 20241017
  Serious: Yes (Hospitalization)
  Sender: ZYDUS PHARM
  Company Number: None

PATIENT

DRUGS (5)
  1. PAROXETINE [Suspect]
     Active Substance: PAROXETINE
     Indication: Intentional overdose
     Dosage: 35 DOSAGE FORM, 1 TOTAL
     Route: 048
     Dates: start: 20240610, end: 20240610
  2. MIRTAZAPINE [Suspect]
     Active Substance: MIRTAZAPINE
     Indication: Intentional overdose
     Dosage: 4 DOSAGE FORM, 1 TOTAL
     Route: 048
     Dates: start: 20240610, end: 20240610
  3. ENALAPRIL [Suspect]
     Active Substance: ENALAPRIL
     Indication: Intentional overdose
     Dosage: 30 DOSAGE FORM, 1 TOTAL
     Route: 048
     Dates: start: 20240610, end: 20240610
  4. HYDROCHLOROTHIAZIDE [Suspect]
     Active Substance: HYDROCHLOROTHIAZIDE
     Indication: Intentional overdose
     Dosage: 30 DOSAGE FORM, 1 TOTAL
     Route: 048
     Dates: start: 20240610, end: 20240610
  5. PROPRANOLOL [Suspect]
     Active Substance: PROPRANOLOL HYDROCHLORIDE
     Indication: Intentional overdose
     Dosage: 16 DOSAGE FORM, 1 TOTAL
     Route: 048
     Dates: start: 20240610, end: 20240610

REACTIONS (3)
  - Acute kidney injury [Recovered/Resolved]
  - Electrocardiogram QT prolonged [Recovered/Resolved]
  - Poisoning deliberate [Recovered/Resolved]

NARRATIVE: CASE EVENT DATE: 20240610
